FAERS Safety Report 8297395-8 (Version None)
Quarter: 2012Q2

REPORT INFORMATION
  Report Type: 
  Country: None (occurrence: None)
  Receive Date: 20120419
  Receipt Date: 20120410
  Transmission Date: 20120825
  Serious: Yes (Hospitalization, Other)
  Sender: FDA-Public Use
  Company Number: US-MYLANLABS-2012S1007645

PATIENT
  Age: 85 Year
  Sex: Female

DRUGS (11)
  1. AFLIBERCEPT [Suspect]
     Route: 031
     Dates: start: 20080806, end: 20090812
  2. BENAZEPRIL HYDROCHLORIDE AND HYDROCHLOROTHIAZIDE [Suspect]
     Indication: HYPERTENSION
     Route: 048
     Dates: start: 19900101
  3. GLIPIZIDE [Concomitant]
     Indication: DIABETES MELLITUS
     Route: 048
     Dates: start: 20110610
  4. DEXAMETHASONE [Concomitant]
     Indication: ECZEMA
     Route: 061
     Dates: start: 20100310
  5. AFLIBERCEPT [Suspect]
     Route: 031
     Dates: start: 20090930, end: 20100609
  6. MULTIVITAMIN [Concomitant]
  7. IMODIUM [Concomitant]
     Indication: IRRITABLE BOWEL SYNDROME
     Route: 048
     Dates: start: 20030101
  8. AFLIBERCEPT [Suspect]
     Indication: AGE-RELATED MACULAR DEGENERATION
     Route: 031
     Dates: start: 20100609
  9. PROBIOTIC ACIDOPHILUS [Concomitant]
     Indication: IRRITABLE BOWEL SYNDROME
     Route: 048
     Dates: start: 20080904
  10. ALLOPURINOL [Concomitant]
     Indication: GOUT
     Route: 048
     Dates: start: 19950101
  11. MOTRIN [Concomitant]
     Route: 048
     Dates: start: 20101118

REACTIONS (5)
  - DEHYDRATION [None]
  - HYPONATRAEMIA [None]
  - SYNCOPE [None]
  - DIARRHOEA [None]
  - FALL [None]
